FAERS Safety Report 5387341-9 (Version None)
Quarter: 2007Q3

REPORT INFORMATION
  Report Type: 
  Country: None (occurrence: None)
  Receive Date: 20070716
  Receipt Date: 20070705
  Transmission Date: 20080115
  Serious: Yes (Hospitalization, Other)
  Sender: FDA-Public Use
  Company Number: PHHO2004IT13160

PATIENT
  Age: 55 Year
  Sex: Female
  Weight: 67 kg

DRUGS (1)
  1. TAMOXIFEN CITRATE [Suspect]
     Indication: BREAST CANCER
     Route: 048
     Dates: start: 20031128, end: 20040527

REACTIONS (5)
  - ENDOMETRIAL ABLATION [None]
  - HYSTEROSCOPY [None]
  - OVARIAN NEOPLASM [None]
  - UTERINE POLYP [None]
  - VAGINAL HAEMORRHAGE [None]
